FAERS Safety Report 23166693 (Version 1)
Quarter: 2023Q4

REPORT INFORMATION
  Report Type: Spontaneous
  Country: CA (occurrence: CA)
  Receive Date: 20231109
  Receipt Date: 20231109
  Transmission Date: 20240110
  Serious: Yes (Other)
  Sender: FDA-Public Use
  Company Number: CA-FreseniusKabi-FK202317892

PATIENT
  Age: 83 Year
  Sex: Male

DRUGS (3)
  1. FENTANYL [Suspect]
     Active Substance: FENTANYL\FENTANYL CITRATE
     Indication: Product used for unknown indication
     Dosage: DOSAGE FORM: NOT SPECIFIED
  2. MIDAZOLAM HYDROCHLORIDE [Suspect]
     Active Substance: MIDAZOLAM HYDROCHLORIDE
     Indication: Product used for unknown indication
  3. HURRICAINE [Concomitant]
     Active Substance: BENZOCAINE
     Indication: Product used for unknown indication

REACTIONS (4)
  - Aspiration [Unknown]
  - Chest X-ray abnormal [Unknown]
  - Hypoxia [Unknown]
  - Oxygen therapy [Unknown]
